FAERS Safety Report 22342045 (Version 1)
Quarter: 2023Q2

REPORT INFORMATION
  Report Type: Spontaneous
  Country: GB (occurrence: GB)
  Receive Date: 20230518
  Receipt Date: 20230518
  Transmission Date: 20230722
  Serious: Yes (Death, Life-Threatening, Other)
  Sender: FDA-Public Use
  Company Number: None

PATIENT
  Age: 13 Year
  Sex: Male
  Weight: 140 kg

DRUGS (29)
  1. DEXMEDETOMIDINE [Suspect]
     Active Substance: DEXMEDETOMIDINE
     Indication: Sedation
     Dosage: 2.7 - 4MG/DAY AS CONTINUOUS INFUSION, PHARMACEUTICAL FORM: INJECTION
     Route: 065
     Dates: start: 20220203
  2. ALFENTANIL [Concomitant]
     Active Substance: ALFENTANIL
     Route: 065
  3. CHLORAL HYDRATE [Concomitant]
     Active Substance: CHLORAL HYDRATE
     Route: 065
  4. COTRIMOXAZOLE [Concomitant]
     Active Substance: SULFAMETHOXAZOLE\TRIMETHOPRIM
     Route: 065
  5. DEXAMETHASONE [Concomitant]
     Active Substance: DEXAMETHASONE
     Route: 065
  6. ENOXAPARIN [Concomitant]
     Active Substance: ENOXAPARIN
     Route: 065
  7. FENTANYL [Concomitant]
     Active Substance: FENTANYL
     Route: 065
  8. FLUCONAZOLE [Concomitant]
     Active Substance: FLUCONAZOLE
     Route: 065
  9. FUROSEMIDE [Concomitant]
     Active Substance: FUROSEMIDE
     Route: 065
  10. GENTAMICIN [Concomitant]
     Active Substance: GENTAMICIN
     Route: 065
  11. HEPARIN [Concomitant]
     Active Substance: HEPARIN SODIUM
     Route: 065
  12. IBUPROFEN [Concomitant]
     Active Substance: IBUPROFEN
     Route: 065
  13. KETAMINE [Concomitant]
     Active Substance: KETAMINE
     Route: 065
  14. LACTULOSE [Concomitant]
     Active Substance: LACTULOSE
     Route: 065
  15. POLYETHYLENE GLYCOL 3350\POTASSIUM CHLORIDE\SODIUM BICARBONATE\SODIUM [Concomitant]
     Active Substance: POLYETHYLENE GLYCOL 3350\POTASSIUM CHLORIDE\SODIUM BICARBONATE\SODIUM CHLORIDE
     Route: 065
  16. MELATONIN [Concomitant]
     Active Substance: MELATONIN
     Route: 065
  17. MEROPENEM [Concomitant]
     Active Substance: MEROPENEM
     Route: 065
  18. METRONIDAZOLE [Concomitant]
     Active Substance: METRONIDAZOLE
     Route: 065
  19. MIDAZOLAM [Concomitant]
     Active Substance: MIDAZOLAM
     Route: 065
  20. MILRINONE [Concomitant]
     Active Substance: MILRINONE
     Route: 065
  21. MORPHINE [Concomitant]
     Active Substance: MORPHINE
     Route: 065
  22. NYSTATIN [Concomitant]
     Active Substance: NYSTATIN
     Route: 065
  23. ACETAMINOPHEN [Concomitant]
     Active Substance: ACETAMINOPHEN
     Route: 065
  24. PROPOFOL [Concomitant]
     Active Substance: PROPOFOL
     Route: 065
  25. ROCURONIUM [Concomitant]
     Active Substance: ROCURONIUM BROMIDE
     Route: 065
  26. SERTRALINE [Concomitant]
     Active Substance: SERTRALINE HYDROCHLORIDE
     Route: 065
  27. SPIRONOLACTONE [Concomitant]
     Active Substance: SPIRONOLACTONE
     Route: 065
  28. FERROUS SULFATE [Concomitant]
     Active Substance: FERROUS SULFATE
     Dosage: AT AN UNSPECIFIED DOSE AND FREQUENCY, UK
     Route: 065
  29. VANCOMYCIN [Concomitant]
     Active Substance: VANCOMYCIN
     Route: 065

REACTIONS (3)
  - Multiple organ dysfunction syndrome [Fatal]
  - Hyperpyrexia [Fatal]
  - Renal failure [Not Recovered/Not Resolved]

NARRATIVE: CASE EVENT DATE: 20220211
